FAERS Safety Report 9470805 (Version 2)
Quarter: 2013Q3

REPORT INFORMATION
  Report Type: Report from Study
  Country: CA (occurrence: CA)
  Receive Date: 20130822
  Receipt Date: 20130822
  Transmission Date: 20140515
  Serious: Yes (Hospitalization)
  Sender: FDA-Public Use
  Company Number: CA-ABBOTT-13P-028-1130733-00

PATIENT
  Sex: Female

DRUGS (1)
  1. HUMIRA [Suspect]
     Indication: CROHN^S DISEASE
     Route: 058
     Dates: start: 20090914

REACTIONS (3)
  - Unevaluable event [Not Recovered/Not Resolved]
  - Intestinal operation [Not Recovered/Not Resolved]
  - Crohn^s disease [Not Recovered/Not Resolved]
